FAERS Safety Report 18868772 (Version 2)
Quarter: 2021Q2

REPORT INFORMATION
  Report Type: Spontaneous
  Country: BR (occurrence: BR)
  Receive Date: 20210209
  Receipt Date: 20210405
  Transmission Date: 20210717
  Serious: Yes (Other)
  Sender: FDA-Public Use
  Company Number: BR-SA-2021SA032110

PATIENT
  Sex: Male

DRUGS (4)
  1. AAS [Concomitant]
     Active Substance: ASPIRIN
     Dosage: 150 MG, QD
  2. AAS [Concomitant]
     Active Substance: ASPIRIN
     Dosage: 200 MG, QD
  3. ADDERA D3 [Concomitant]
     Active Substance: CHOLECALCIFEROL
     Dosage: 1 UNK, QD
  4. CLEXANE [Suspect]
     Active Substance: ENOXAPARIN SODIUM
     Dosage: 40 MG, BID
     Route: 066
     Dates: start: 20200725

REACTIONS (5)
  - Exposure via breast milk [Unknown]
  - Premature baby [Unknown]
  - Foetal growth restriction [Not Recovered/Not Resolved]
  - Foetal exposure during pregnancy [Not Recovered/Not Resolved]
  - Platelet count decreased [Unknown]
